FAERS Safety Report 8601339-6 (Version None)
Quarter: 2012Q3

REPORT INFORMATION
  Report Type: 
  Country: None (occurrence: None)
  Receive Date: 20120817
  Receipt Date: 20120808
  Transmission Date: 20120928
  Serious: Yes (Other)
  Sender: FDA-Public Use
  Company Number: JP-B.I. PHARMACEUTICALS,INC./RIDGEFIELD-2012-EU-04045GD

PATIENT
  Age: 70 Year
  Sex: Female

DRUGS (2)
  1. CIPRALAN [Suspect]
     Indication: ATRIAL FIBRILLATION
     Dosage: 50 MG
     Route: 048
     Dates: start: 20110601
  2. PRADAXA [Suspect]
     Indication: ATRIAL FIBRILLATION
     Dosage: 110 MG
     Route: 048
     Dates: start: 20110601

REACTIONS (4)
  - NORMOCHROMIC NORMOCYTIC ANAEMIA [None]
  - FEELING COLD [None]
  - AGRANULOCYTOSIS [None]
  - MALAISE [None]
